FAERS Safety Report 7087765-8 (Version None)
Quarter: 2010Q4

REPORT INFORMATION
  Report Type: 
  Country: None (occurrence: None)
  Receive Date: 20101108
  Receipt Date: 20101025
  Transmission Date: 20110411
  Serious: No
  Sender: FDA-Public Use
  Company Number: US-ELI_LILLY_AND_COMPANY-US201009007278

PATIENT
  Sex: Female

DRUGS (2)
  1. HUMALOG [Suspect]
  2. NOVOLIN 70/30 [Concomitant]

REACTIONS (1)
  - BLOOD GLUCOSE ABNORMAL [None]
